FAERS Safety Report 9888892 (Version 1)
Quarter: 2014Q1

REPORT INFORMATION
  Report Type: Spontaneous
  Country: US (occurrence: US)
  Receive Date: 20140211
  Receipt Date: 20140211
  Transmission Date: 20141002
  Serious: Yes (Death)
  Sender: FDA-Public Use
  Company Number: US-GLAXOSMITHKLINE-A1059644A

PATIENT
  Age: 56 Year
  Sex: Female

DRUGS (6)
  1. VOTRIENT [Suspect]
     Indication: LUNG NEOPLASM MALIGNANT
     Dates: start: 20131108
  2. VICODIN [Concomitant]
  3. ZOCOR [Concomitant]
  4. EFFEXOR XR [Concomitant]
  5. EMEND [Concomitant]
  6. FENTANYL [Concomitant]

REACTIONS (1)
  - Death [Fatal]
